FAERS Safety Report 13763233 (Version 2)
Quarter: 2017Q3

REPORT INFORMATION
  Report Type: Spontaneous
  Country: US (occurrence: US)
  Receive Date: 20170718
  Receipt Date: 20170718
  Transmission Date: 20171127
  Serious: Yes (Hospitalization)
  Sender: FDA-Public Use
  Company Number: US-PFIZER INC-2017236695

PATIENT
  Age: 39 Year
  Sex: Male

DRUGS (3)
  1. ROBITUSSIN SEVERE MULTI-SYMPTOM COUGH COLD FLU [Suspect]
     Active Substance: ACETAMINOPHEN\DEXTROMETHORPHAN HYDROBROMIDE\GUAIFENESIN\PHENYLEPHRINE HYDROCHLORIDE
     Dosage: UNK
  2. ROBITUSSIN SEVERE MULTI-SYMPTOM COUGH COLD FLU [Suspect]
     Active Substance: ACETAMINOPHEN\DEXTROMETHORPHAN HYDROBROMIDE\GUAIFENESIN\PHENYLEPHRINE HYDROCHLORIDE
     Indication: SECRETION DISCHARGE
     Dosage: 20 MG, UNK
     Dates: start: 20170526
  3. ROBITUSSIN NIGHT TIME COUGH, COLD AND FLU [Suspect]
     Active Substance: ACETAMINOPHEN\CHLORPHENIRAMINE\DEXTROMETHORPHAN\PHENYLEPHRINE
     Dosage: UNK

REACTIONS (5)
  - Product taste abnormal [Recovered/Resolved]
  - Product quality issue [Recovered/Resolved]
  - Diarrhoea [Recovered/Resolved]
  - Product odour abnormal [Recovered/Resolved]
  - Product packaging issue [Recovered/Resolved]

NARRATIVE: CASE EVENT DATE: 20170526
